FAERS Safety Report 24287473 (Version 1)
Quarter: 2024Q3

REPORT INFORMATION
  Report Type: Spontaneous
  Country: US (occurrence: None)
  Receive Date: 20240905
  Receipt Date: 20240905
  Transmission Date: 20241017
  Serious: No
  Sender: ASTRAZENECA
  Company Number: 2024A190826

PATIENT
  Sex: Female

DRUGS (2)
  1. BREZTRI [Suspect]
     Active Substance: BUDESONIDE\FORMOTEROL\GLYCOPYRROLATE
     Route: 055
  2. MONTELUKAST [Concomitant]
     Active Substance: MONTELUKAST SODIUM
     Route: 055

REACTIONS (7)
  - Feeling abnormal [Unknown]
  - Fear [Unknown]
  - Wheezing [Unknown]
  - Illness [Unknown]
  - Hyperhidrosis [Unknown]
  - Device use issue [Unknown]
  - Product dose omission issue [Unknown]
